FAERS Safety Report 5536743-6 (Version None)
Quarter: 2007Q4

REPORT INFORMATION
  Report Type: 
  Country: None (occurrence: None)
  Receive Date: 20071206
  Receipt Date: 20070427
  Transmission Date: 20080405
  Serious: Yes (Other)
  Sender: FDA-Public Use
  Company Number: US-AMGEN-STX213643

PATIENT
  Sex: Female

DRUGS (8)
  1. ENBREL [Suspect]
     Indication: RHEUMATOID ARTHRITIS
     Route: 058
     Dates: start: 20061124
  2. IMURAN [Concomitant]
     Route: 065
     Dates: start: 20070217
  3. PREDNISONE TAB [Concomitant]
     Route: 065
     Dates: start: 20060601
  4. ZOCOR [Concomitant]
     Route: 065
  5. GLUCOPHAGE [Concomitant]
     Route: 065
  6. BACTRIM DS [Concomitant]
     Route: 065
     Dates: start: 20060601
  7. PREMARIN [Concomitant]
     Route: 065
  8. TARKA [Concomitant]
     Route: 065

REACTIONS (5)
  - DYSPNOEA [None]
  - PAIN IN EXTREMITY [None]
  - SKIN FISSURES [None]
  - SKIN HAEMORRHAGE [None]
  - SKIN HYPERTROPHY [None]
